FAERS Safety Report 5117132-5 (Version None)
Quarter: 2006Q3

REPORT INFORMATION
  Report Type: 
  Country: None (occurrence: None)
  Receive Date: 20060929
  Receipt Date: 20060809
  Transmission Date: 20061208
  Serious: Yes (Death, Hospitalization, Other)
  Sender: FDA-Public Use
  Company Number: US-ABBOTT-06P-163-0340251-00

PATIENT
  Sex: Male

DRUGS (4)
  1. GENGRAF [Suspect]
     Indication: RENAL TRANSPLANT
     Route: 048
     Dates: start: 20020726, end: 20060507
  2. TACROLIMUS [Suspect]
     Indication: DRUG USE FOR UNKNOWN INDICATION
     Route: 048
     Dates: start: 20060507, end: 20060617
  3. MYCOPHENOLATE MOFETIL [Concomitant]
     Indication: DRUG USE FOR UNKNOWN INDICATION
     Dates: start: 20020725
  4. PREDNISONE TAB [Concomitant]
     Indication: DRUG USE FOR UNKNOWN INDICATION
     Dates: start: 20020727

REACTIONS (13)
  - ABDOMINAL MASS [None]
  - CAVERNOUS SINUS THROMBOSIS [None]
  - CHILLS [None]
  - DIFFUSE LARGE B-CELL LYMPHOMA [None]
  - EYE PAIN [None]
  - INTRACRANIAL VENOUS SINUS THROMBOSIS [None]
  - LYMPHOPROLIFERATIVE DISORDER [None]
  - MALAISE [None]
  - MUCORMYCOSIS [None]
  - NAUSEA [None]
  - NEUROLOGICAL SYMPTOM [None]
  - PYREXIA [None]
  - URINE OUTPUT DECREASED [None]
